FAERS Safety Report 25278057 (Version 1)
Quarter: 2025Q2

REPORT INFORMATION
  Report Type: Spontaneous
  Country: CN (occurrence: CN)
  Receive Date: 20250507
  Receipt Date: 20250507
  Transmission Date: 20250717
  Serious: Yes (Other)
  Sender: Unknown Manufacturer
  Company Number: CN-ASTRAZENECA-202504CHN019427CN

PATIENT

DRUGS (1)
  1. METOPROLOL SUCCINATE [Suspect]
     Active Substance: METOPROLOL SUCCINATE
     Indication: Heart rate decreased
     Dosage: 0.25 DOSAGE FORM, QD
     Route: 048
     Dates: start: 20250421, end: 20250421

REACTIONS (4)
  - Bone pain [Recovered/Resolved]
  - Flushing [Recovered/Resolved]
  - Pyrexia [Recovering/Resolving]
  - Nausea [Recovered/Resolved]

NARRATIVE: CASE EVENT DATE: 20250421
